FAERS Safety Report 9678615 (Version 2)
Quarter: 2013Q4

REPORT INFORMATION
  Report Type: Spontaneous
  Country: LB (occurrence: LB)
  Receive Date: 20131108
  Receipt Date: 20131122
  Transmission Date: 20140711
  Serious: Yes (Death, Hospitalization)
  Sender: FDA-Public Use
  Company Number: LB-JNJFOC-20131100732

PATIENT
  Age: 44 Year
  Sex: Female
  Weight: 70 kg

DRUGS (4)
  1. REMICADE [Suspect]
     Indication: CROHN^S DISEASE
     Dosage: FOR 4 YEARS, 3.5 VIALS
     Route: 042
     Dates: start: 2010, end: 2013
  2. LOVENOX [Concomitant]
     Indication: CROHN^S DISEASE
     Dosage: TOTAL DAILY DOSE: 40
     Route: 065
  3. PREDNISONE [Concomitant]
     Indication: CROHN^S DISEASE
     Route: 065
  4. NEXIUM [Concomitant]
     Indication: PROPHYLAXIS
     Route: 065

REACTIONS (4)
  - Septic shock [Fatal]
  - Small intestinal perforation [Not Recovered/Not Resolved]
  - Intestinal obstruction [Not Recovered/Not Resolved]
  - Intestinal ischaemia [Not Recovered/Not Resolved]
